FAERS Safety Report 4969717-4 (Version None)
Quarter: 2006Q2

REPORT INFORMATION
  Report Type: 
  Country: None (occurrence: None)
  Receive Date: 20060411
  Receipt Date: 20060404
  Transmission Date: 20061013
  Serious: Yes (Hospitalization)
  Sender: FDA-Public Use
  Company Number: FR-MERCK-0604FRA00013

PATIENT
  Age: 76 Year
  Sex: Female

DRUGS (2)
  1. NOROXIN [Suspect]
     Route: 048
     Dates: start: 20060227, end: 20060301
  2. FLUINDIONE [Suspect]
     Route: 048
     Dates: end: 20060301

REACTIONS (4)
  - DRUG INTERACTION [None]
  - ECCHYMOSIS [None]
  - HAEMATURIA [None]
  - PROTHROMBIN TIME RATIO DECREASED [None]
